FAERS Safety Report 10966027 (Version 1)
Quarter: 2015Q1

REPORT INFORMATION
  Report Type: Spontaneous
  Country: JP (occurrence: JP)
  Receive Date: 20150330
  Receipt Date: 20150330
  Transmission Date: 20150721
  Serious: Yes (Life-Threatening, Hospitalization)
  Sender: FDA-Public Use
  Company Number: JP-009507513-1501JPN008511

PATIENT
  Age: 65 Year
  Sex: Female
  Weight: 51 kg

DRUGS (9)
  1. FLUCONAZOLE. [Concomitant]
     Active Substance: FLUCONAZOLE
     Indication: FEBRILE NEUTROPENIA
     Dosage: TOTAL DAILY DOSE: 200 MG
     Route: 048
     Dates: start: 20141003, end: 20141017
  2. PARIET [Concomitant]
     Active Substance: RABEPRAZOLE SODIUM
     Indication: PROPHYLAXIS AGAINST GASTROINTESTINAL ULCER
     Dosage: 10 MG, 1X1 DAY
     Route: 048
     Dates: start: 20141003
  3. SOLU-CORTEF [Concomitant]
     Active Substance: HYDROCORTISONE SODIUM SUCCINATE
     Indication: FEBRILE NEUTROPENIA
     Dosage: 100 MG, AS NEEDED
     Route: 051
     Dates: start: 20141015, end: 20141029
  4. CANCIDAS [Suspect]
     Active Substance: CASPOFUNGIN ACETATE
     Indication: FEBRILE NEUTROPENIA
     Dosage: 50 MG, 1X1 DAY
     Route: 041
     Dates: start: 20141015, end: 20141029
  5. CANCIDAS [Suspect]
     Active Substance: CASPOFUNGIN ACETATE
     Indication: FEBRILE NEUTROPENIA
     Dosage: 70 MG, 1X1 DAY
     Route: 041
     Dates: start: 20141014, end: 20141014
  6. MEROPEN [Concomitant]
     Active Substance: MEROPENEM
     Indication: FEBRILE NEUTROPENIA
     Dosage: 1 G, 3X1 DAY
     Route: 051
     Dates: start: 20141013, end: 20141017
  7. BAKTAR [Concomitant]
     Active Substance: SULFAMETHOXAZOLE\TRIMETHOPRIM
     Indication: ANTIFUNGAL PROPHYLAXIS
     Dosage: 1 G, 1X1 DAY
     Route: 048
     Dates: start: 20141003, end: 20141031
  8. DIFLUCAN [Concomitant]
     Active Substance: FLUCONAZOLE
     Indication: INFECTION PROPHYLAXIS
     Dosage: 200 MG, 1X1 DAY
     Route: 048
     Dates: start: 20141003, end: 20141016
  9. CALONAL [Concomitant]
     Active Substance: ACETAMINOPHEN
     Indication: PYREXIA
     Dosage: 400 MG, AS NEEDED
     Dates: start: 20141003

REACTIONS (3)
  - Hepatic function abnormal [Recovering/Resolving]
  - Blood alkaline phosphatase increased [Recovering/Resolving]
  - Enteritis infectious [Recovered/Resolved]

NARRATIVE: CASE EVENT DATE: 20141015
